FAERS Safety Report 8071117 (Version 5)
Quarter: 2014Q2

REPORT INFORMATION
  Report Type: Spontaneous
  Country: US (occurrence: US)
  Receive Date: 20110805
  Receipt Date: 20140620
  Transmission Date: 20141212
  Serious: Yes (Hospitalization)
  Sender: FDA-Public Use
  Company Number: US-GLAXOSMITHKLINE-A0878762A

PATIENT
  Sex: Male

DRUGS (1)
  1. AVANDIA [Suspect]
     Indication: DIABETES MELLITUS
     Dosage: 4MG PER DAY
     Route: 048
     Dates: start: 200504, end: 200512

REACTIONS (9)
  - Myocardial infarction [Not Recovered/Not Resolved]
  - Cardiac arrest [Unknown]
  - Ventricular tachycardia [Unknown]
  - Supraventricular tachycardia [Unknown]
  - Ventricular fibrillation [Unknown]
  - Cardiac failure congestive [Unknown]
  - Fluid overload [Unknown]
  - Fluid retention [Unknown]
  - Coronary artery disease [Unknown]
